FAERS Safety Report 7752677-0 (Version None)
Quarter: 2011Q3

REPORT INFORMATION
  Report Type: 
  Country: None (occurrence: None)
  Receive Date: 20110913
  Receipt Date: 20110902
  Transmission Date: 20111222
  Serious: Yes (Other)
  Sender: FDA-Public Use
  Company Number: 2011SP041765

PATIENT
  Age: 37 Year
  Sex: Female
  Weight: 58 kg

DRUGS (2)
  1. CERAZETTE (DESOGESTREL / 00754001/ ) [Suspect]
     Indication: CONTRACEPTION
     Dosage: QD;PO
     Route: 048
     Dates: start: 20110822, end: 20110829
  2. DOPAMINE HCL [Concomitant]

REACTIONS (5)
  - ABDOMINAL PAIN [None]
  - JAUNDICE HEPATOCELLULAR [None]
  - PRURITUS [None]
  - BREAST FEEDING [None]
  - VOMITING [None]
